FAERS Safety Report 9744484 (Version 2)
Quarter: 2013Q4

REPORT INFORMATION
  Report Type: Spontaneous
  Country: FR (occurrence: FR)
  Receive Date: 20131210
  Receipt Date: 20131217
  Transmission Date: 20140711
  Serious: Yes (Hospitalization)
  Sender: FDA-Public Use
  Company Number: FR-ASTRAZENECA-2013SE88769

PATIENT
  Age: 15428 Day
  Sex: Female

DRUGS (4)
  1. MOPRAL [Suspect]
     Indication: HELICOBACTER GASTRITIS
     Route: 048
     Dates: start: 20130613, end: 20130628
  2. AMOXICILLINE [Suspect]
     Indication: HELICOBACTER GASTRITIS
     Route: 048
     Dates: start: 20130613, end: 20130620
  3. FLAGYL [Suspect]
     Indication: HELICOBACTER GASTRITIS
     Route: 048
     Dates: start: 20130613, end: 20130620
  4. LEVOFLOXACINE [Suspect]
     Indication: HELICOBACTER GASTRITIS
     Route: 048
     Dates: start: 20130627, end: 20130628

REACTIONS (3)
  - Diarrhoea haemorrhagic [Recovered/Resolved]
  - Colitis ulcerative [Unknown]
  - Urticaria [Recovered/Resolved]
